FAERS Safety Report 9737488 (Version 2)
Quarter: 2014Q1

REPORT INFORMATION
  Report Type: Spontaneous
  Country: US (occurrence: US)
  Receive Date: 20131206
  Receipt Date: 20140225
  Transmission Date: 20141002
  Serious: No
  Sender: FDA-Public Use
  Company Number: US-GILEAD-2013-0089415

PATIENT
  Sex: Female

DRUGS (1)
  1. LETAIRIS [Suspect]
     Indication: PULMONARY ARTERIAL HYPERTENSION
     Dosage: 10 MG, QD
     Route: 048
     Dates: start: 20131012

REACTIONS (6)
  - Tremor [Unknown]
  - Unevaluable event [Unknown]
  - Speech disorder [Unknown]
  - Overdose [Unknown]
  - Heart rate abnormal [Unknown]
  - Dysarthria [Unknown]
